FAERS Safety Report 22217487 (Version 1)
Quarter: 2023Q2

REPORT INFORMATION
  Report Type: Other
  Country: GB (occurrence: GB)
  Receive Date: 20230417
  Receipt Date: 20230417
  Transmission Date: 20230722
  Serious: Yes (Other)
  Sender: FDA-Public Use
  Company Number: None

PATIENT

DRUGS (5)
  1. LATANOPROST [Suspect]
     Active Substance: LATANOPROST
     Dosage: EACH EYE AT NIGHT
     Dates: start: 20230310
  2. BENZALKONIUM CHLORIDE [Suspect]
     Active Substance: BENZALKONIUM CHLORIDE
  3. BECLOMETHASONE DIPROPIONATE [Concomitant]
     Active Substance: BECLOMETHASONE DIPROPIONATE
  4. LATANOPROST [Concomitant]
     Active Substance: LATANOPROST
     Dosage: DROP INTO THE AFFECTED EYE
     Dates: start: 20220916
  5. ALBUTEROL [Concomitant]
     Active Substance: ALBUTEROL

REACTIONS (9)
  - Eye irritation [Unknown]
  - Headache [Unknown]
  - Vision blurred [Unknown]
  - Dry eye [Unknown]
  - Hypersensitivity [Unknown]
  - Lacrimation increased [Unknown]
  - Eye pruritus [Unknown]
  - Ocular hyperaemia [Unknown]
  - Product substitution issue [Unknown]
